FAERS Safety Report 7677121-3 (Version None)
Quarter: 2011Q3

REPORT INFORMATION
  Report Type: 
  Country: None (occurrence: None)
  Receive Date: 20110811
  Receipt Date: 20110801
  Transmission Date: 20111222
  Serious: Yes (Hospitalization)
  Sender: FDA-Public Use
  Company Number: US-JNJFOC-2010028983

PATIENT
  Sex: Male
  Weight: 73.94 kg

DRUGS (6)
  1. MULTI-SYMPTOM ROLAIDS PLUS ANTI-GAS SOFTCHEWS FRUIT [Suspect]
     Indication: DYSPEPSIA
     Dosage: DAILY DOSE TEXT: TWO CHEWS ^OCCASIONAL^
     Route: 048
     Dates: start: 20100626, end: 20100701
  2. LISINOPRIL [Concomitant]
     Route: 048
  3. HYDROCHLOROTHIAZIDE [Concomitant]
     Route: 048
  4. LIPITOR [Concomitant]
     Route: 048
  5. NIFEDIPINE [Concomitant]
     Route: 048
  6. ASPIRIN [Concomitant]
     Route: 048

REACTIONS (12)
  - ABDOMINAL PAIN [None]
  - VOMITING [None]
  - PRODUCT CONTAMINATION PHYSICAL [None]
  - PAIN [None]
  - FATIGUE [None]
  - FOREIGN BODY [None]
  - HEADACHE [None]
  - CHILLS [None]
  - NAUSEA [None]
  - BACK PAIN [None]
  - SURGERY [None]
  - MALAISE [None]
